FAERS Safety Report 13144490 (Version 1)
Quarter: 2017Q1

REPORT INFORMATION
  Report Type: Report from Study
  Country: DE (occurrence: DE)
  Receive Date: 20170124
  Receipt Date: 20170124
  Transmission Date: 20170428
  Serious: Yes (Hospitalization)
  Sender: FDA-Public Use
  Company Number: DE-JNJFOC-20170114629

PATIENT
  Age: 58 Year
  Sex: Male
  Weight: 113 kg

DRUGS (6)
  1. VIANI [Concomitant]
     Active Substance: FLUTICASONE PROPIONATE\SALMETEROL XINAFOATE
     Dosage: 0-0-1
     Route: 065
     Dates: start: 20161227
  2. CEFUROXIME. [Concomitant]
     Active Substance: CEFUROXIME
     Dosage: 500, 1-0-1
     Route: 065
     Dates: start: 20161227, end: 20170102
  3. DECORTIN [Concomitant]
     Active Substance: PREDNISONE
     Dosage: 20, 1-0-0, REDUCTION IN STEPS OF 10, AFTERWARDS STOP
     Route: 065
     Dates: start: 20161227
  4. ACETYLCYSTEINE. [Concomitant]
     Active Substance: ACETYLCYSTEINE
     Dosage: 1-0-0
     Route: 065
     Dates: start: 20161227
  5. STELARA [Suspect]
     Active Substance: USTEKINUMAB
     Indication: PSORIASIS
     Route: 058
     Dates: start: 20160610, end: 20161006
  6. STELARA [Suspect]
     Active Substance: USTEKINUMAB
     Indication: PSORIASIS
     Route: 058
     Dates: start: 20170112

REACTIONS (2)
  - Infection [Unknown]
  - Chronic obstructive pulmonary disease [Unknown]

NARRATIVE: CASE EVENT DATE: 201610
